FAERS Safety Report 25035460 (Version 2)
Quarter: 2025Q1

REPORT INFORMATION
  Report Type: Spontaneous
  Country: JP (occurrence: JP)
  Receive Date: 20250304
  Receipt Date: 20250314
  Transmission Date: 20250409
  Serious: Yes (Other)
  Sender: TEVA
  Company Number: JP-TEVA-VS-3303509

PATIENT
  Age: 23 Year
  Sex: Male

DRUGS (2)
  1. ENALAPRIL [Suspect]
     Active Substance: ENALAPRIL
     Indication: Cardiac failure chronic
     Route: 065
  2. CARVEDILOL [Suspect]
     Active Substance: CARVEDILOL
     Indication: Cardiac failure chronic
     Route: 065

REACTIONS (4)
  - Renal ischaemia [Recovered/Resolved]
  - Metabolic alkalosis [Unknown]
  - Nephropathy toxic [Recovered/Resolved]
  - Metabolic acidosis [Unknown]
